FAERS Safety Report 26025258 (Version 1)
Quarter: 2025Q4

REPORT INFORMATION
  Report Type: Report from Study
  Country: US (occurrence: US)
  Receive Date: 20251111
  Receipt Date: 20251111
  Transmission Date: 20260117
  Serious: Yes (Other)
  Sender: ALEXION PHARMACEUTICALS
  Company Number: US-ASTRAZENECA-202508NAM026709US

PATIENT
  Sex: Female

DRUGS (1)
  1. SAPHNELO [Suspect]
     Active Substance: ANIFROLUMAB-FNIA
     Indication: Systemic lupus erythematosus
     Dosage: 300 MILLIGRAM, Q4W
     Dates: start: 20250703

REACTIONS (6)
  - Idiopathic intracranial hypertension [Unknown]
  - Loss of consciousness [Unknown]
  - Arthralgia [Unknown]
  - Contusion [Unknown]
  - Product dose omission issue [Unknown]
  - Arthralgia [Unknown]
